FAERS Safety Report 9670949 (Version 1)
Quarter: 2013Q4

REPORT INFORMATION
  Report Type: Spontaneous
  Country: BE (occurrence: BE)
  Receive Date: 20131106
  Receipt Date: 20131106
  Transmission Date: 20140711
  Serious: Yes (Congenital Anomaly, Other)
  Sender: FDA-Public Use
  Company Number: BE-JNJFOC-20131019193

PATIENT
  Sex: 0

DRUGS (1)
  1. SIMPONI [Suspect]
     Indication: PRODUCT USED FOR UNKNOWN INDICATION
     Dosage: MOTHER^S DOISNG
     Route: 064
     Dates: end: 201201

REACTIONS (4)
  - Cataract congenital [Unknown]
  - Galactosaemia [Unknown]
  - Foetal exposure during pregnancy [Recovered/Resolved]
  - Inadequate diet [Unknown]
